FAERS Safety Report 5410834-2 (Version None)
Quarter: 2007Q3

REPORT INFORMATION
  Report Type: 
  Country: None (occurrence: None)
  Receive Date: 20070810
  Receipt Date: 20070801
  Transmission Date: 20080115
  Serious: Yes (Other)
  Sender: FDA-Public Use
  Company Number: PHBS2007JP12879

PATIENT
  Age: 62 Year
  Sex: Female

DRUGS (8)
  1. LOCHOL [Suspect]
     Dosage: 20 MG/DAY
     Route: 048
     Dates: end: 20070701
  2. LOCHOL [Suspect]
     Dosage: 30 MG/DAY
     Route: 048
     Dates: start: 20070702, end: 20070731
  3. ACTOS [Suspect]
     Dosage: 7.5 MG/DAY
     Route: 048
  4. EUGLUCON [Suspect]
     Dosage: 1.25 MG/DAY
     Route: 048
  5. NORVASC [Suspect]
     Route: 048
  6. LENDORMIN [Suspect]
     Route: 048
  7. VOGLIBOSE [Suspect]
  8. DIOVAN [Suspect]
     Indication: HYPERTENSION
     Dosage: 80 MG/DAY
     Route: 048
     Dates: start: 20070626, end: 20070801

REACTIONS (2)
  - BLOOD TRIGLYCERIDES INCREASED [None]
  - HAEMATURIA [None]
